FAERS Safety Report 13644119 (Version 1)
Quarter: 2017Q2

REPORT INFORMATION
  Report Type: Spontaneous
  Country: US (occurrence: US)
  Receive Date: 20170612
  Receipt Date: 20170612
  Transmission Date: 20170830
  Serious: Yes (Death, Other)
  Sender: FDA-Public Use
  Company Number: US-NAPPMUNDI-USA-2017-0139220

PATIENT
  Age: 14 Month
  Sex: Male

DRUGS (2)
  1. OXYCODONE HYDROCHLORIDE (SIMILAR TO NDA 22-272) [Suspect]
     Active Substance: OXYCODONE HYDROCHLORIDE
     Indication: ACCIDENTAL EXPOSURE TO PRODUCT BY CHILD
     Dosage: UNK
     Route: 048
     Dates: start: 201602
  2. OXYCONTIN [Suspect]
     Active Substance: OXYCODONE HYDROCHLORIDE
     Indication: ACCIDENTAL EXPOSURE TO PRODUCT BY CHILD
     Dosage: UNK
     Route: 048
     Dates: start: 201602

REACTIONS (7)
  - Toxicity to various agents [Fatal]
  - Unresponsive to stimuli [Not Recovered/Not Resolved]
  - Accidental exposure to product by child [Not Recovered/Not Resolved]
  - Respiration abnormal [Not Recovered/Not Resolved]
  - Vomiting [Not Recovered/Not Resolved]
  - Cyanosis [Not Recovered/Not Resolved]
  - Body temperature decreased [Not Recovered/Not Resolved]

NARRATIVE: CASE EVENT DATE: 201602
